FAERS Safety Report 5176475-X (Version None)
Quarter: 2006Q4

REPORT INFORMATION
  Report Type: 
  Country: None (occurrence: None)
  Receive Date: 20061215
  Receipt Date: 20060928
  Transmission Date: 20070319
  Serious: Yes (Hospitalization, Other)
  Sender: FDA-Public Use
  Company Number: SE-NOVOPROD-257403

PATIENT
  Age: 32 Year
  Sex: Female

DRUGS (4)
  1. NOVOSEVEN [Suspect]
     Indication: CEREBRAL HAEMORRHAGE
     Dosage: 6 MG, UNK
     Route: 042
     Dates: start: 20060210, end: 20060210
  2. PROPOFOL [Concomitant]
  3. MISOPROSTOL [Concomitant]
  4. MIFEPRISTONE [Concomitant]

REACTIONS (5)
  - ABORTION SPONTANEOUS [None]
  - COGNITIVE DISORDER [None]
  - DRUG EXPOSURE DURING PREGNANCY [None]
  - HEMIPARESIS [None]
  - PLACENTAL INFARCTION [None]
